FAERS Safety Report 7953713-9 (Version None)
Quarter: 2011Q4

REPORT INFORMATION
  Report Type: 
  Country: None (occurrence: None)
  Receive Date: 20111202
  Receipt Date: 20111122
  Transmission Date: 20120403
  Serious: Yes (Hospitalization, Other)
  Sender: FDA-Public Use
  Company Number: JP-JNJFOC-20111010355

PATIENT
  Sex: Female
  Weight: 51 kg

DRUGS (38)
  1. RISPERDAL [Suspect]
     Route: 048
     Dates: start: 20080612, end: 20080711
  2. ROHYPNOL [Suspect]
     Route: 048
     Dates: start: 20090827, end: 20100427
  3. ROHYPNOL [Suspect]
     Route: 048
     Dates: start: 20100531, end: 20100624
  4. ROHYPNOL [Suspect]
     Route: 048
     Dates: start: 20080627, end: 20080724
  5. RISPERDAL [Suspect]
     Route: 048
     Dates: start: 20081113, end: 20081204
  6. LONASEN [Suspect]
     Route: 048
     Dates: start: 20100225, end: 20100628
  7. ROHYPNOL [Suspect]
     Indication: INSOMNIA
     Route: 048
     Dates: start: 20090702, end: 20090826
  8. ROHYPNOL [Suspect]
     Route: 048
     Dates: start: 20080725, end: 20080807
  9. RISPERDAL [Suspect]
     Indication: SCHIZOPHRENIA
     Route: 048
     Dates: start: 20081204, end: 20091225
  10. RISPERDAL [Suspect]
     Route: 048
     Dates: start: 20080725, end: 20080808
  11. RISPERDAL [Suspect]
     Route: 048
     Dates: start: 20080711, end: 20080725
  12. ROHYPNOL [Suspect]
     Route: 048
     Dates: start: 20081023, end: 20090107
  13. ROHYPNOL [Suspect]
     Route: 048
     Dates: start: 20080620, end: 20080626
  14. AKINETON [Concomitant]
     Route: 048
     Dates: start: 20080711, end: 20080725
  15. DEPAS [Concomitant]
     Indication: INSOMNIA
     Route: 048
     Dates: start: 20080612, end: 20080619
  16. NON-PYRINE COLD PREPARATION [Concomitant]
     Indication: UPPER RESPIRATORY TRACT INFECTION
     Route: 048
     Dates: start: 20090302, end: 20090309
  17. RISPERDAL [Suspect]
     Route: 048
     Dates: start: 20080808, end: 20081113
  18. RISPERDAL [Suspect]
     Route: 048
     Dates: start: 20091228, end: 20100428
  19. ROHYPNOL [Suspect]
     Route: 048
     Dates: start: 20090604, end: 20090701
  20. ROHYPNOL [Suspect]
     Route: 048
     Dates: start: 20090108, end: 20090506
  21. ROHYPNOL [Suspect]
     Route: 048
     Dates: start: 20081002, end: 20081022
  22. ROHYPNOL [Suspect]
     Route: 048
     Dates: start: 20100428, end: 20100515
  23. ABILIFY [Concomitant]
     Indication: SCHIZOPHRENIA
     Route: 048
     Dates: start: 20090925, end: 20091027
  24. LONASEN [Suspect]
     Indication: SCHIZOPHRENIA
     Route: 048
     Dates: start: 20100127, end: 20100225
  25. LONASEN [Suspect]
     Route: 048
     Dates: start: 20091221, end: 20100127
  26. AKINETON [Concomitant]
     Route: 048
     Dates: start: 20080808, end: 20081113
  27. AKINETON [Concomitant]
     Route: 048
     Dates: start: 20090702, end: 20100330
  28. RISPERDAL [Suspect]
     Route: 048
     Dates: start: 20100428, end: 20100628
  29. ROHYPNOL [Suspect]
     Route: 048
     Dates: start: 20100625, end: 20100628
  30. AKINETON [Concomitant]
     Route: 048
     Dates: start: 20080725, end: 20080808
  31. AKINETON [Concomitant]
     Route: 048
     Dates: start: 20100330, end: 20100531
  32. MYCOSPORAN [Concomitant]
     Indication: TINEA INFECTION
     Route: 061
     Dates: start: 20080701
  33. ROHYPNOL [Suspect]
     Route: 048
     Dates: start: 20080808, end: 20081001
  34. AKINETON [Concomitant]
     Indication: AKATHISIA
     Route: 048
     Dates: start: 20081205, end: 20090702
  35. AKINETON [Concomitant]
     Route: 048
     Dates: start: 20081113, end: 20081205
  36. AKINETON [Concomitant]
     Route: 048
     Dates: start: 20100531, end: 20100625
  37. AKINETON [Concomitant]
     Route: 048
     Dates: start: 20080620, end: 20080711
  38. EPHEDRA TEAS [Concomitant]
     Indication: UPPER RESPIRATORY TRACT INFECTION
     Route: 048
     Dates: start: 20081218, end: 20081225

REACTIONS (4)
  - DISSEMINATED INTRAVASCULAR COAGULATION [None]
  - HEPATIC FUNCTION ABNORMAL [None]
  - NEUROLEPTIC MALIGNANT SYNDROME [None]
  - SEPSIS [None]
